FAERS Safety Report 23591242 (Version 4)
Quarter: 2024Q2

REPORT INFORMATION
  Report Type: Spontaneous
  Country: AT (occurrence: AT)
  Receive Date: 20240304
  Receipt Date: 20240430
  Transmission Date: 20240716
  Serious: No
  Sender: FDA-Public Use
  Company Number: AT-PFIZER INC-PV202400018418

PATIENT
  Age: 9 Year
  Sex: Male

DRUGS (1)
  1. GENOTROPIN [Suspect]
     Active Substance: SOMATROPIN
     Dosage: UNK UNK, DAILY

REACTIONS (4)
  - Device use error [Unknown]
  - Device physical property issue [Unknown]
  - Poor quality device used [Unknown]
  - Expired device used [Unknown]

NARRATIVE: CASE EVENT DATE: 20240206
